FAERS Safety Report 4565348-9 (Version None)
Quarter: 2005Q1

REPORT INFORMATION
  Report Type: 
  Country: None (occurrence: None)
  Receive Date: 20050125
  Receipt Date: 20050125
  Transmission Date: 20050727
  Serious: Yes (Hospitalization)
  Sender: FDA-Public Use
  Company Number: None

PATIENT
  Age: 75 Year
  Sex: Female

DRUGS (2)
  1. FLECAINIDE ACETATE [Suspect]
     Dosage: 50 MG  BID  ORAL
     Route: 048
     Dates: start: 20050117, end: 20050117
  2. HYDROCHLOROTHIAZIDE [Suspect]
     Dates: start: 20050117, end: 20050117

REACTIONS (5)
  - BLOOD POTASSIUM DECREASED [None]
  - ELECTROCARDIOGRAM QRS COMPLEX PROLONGED [None]
  - EXTRASYSTOLES [None]
  - LOSS OF CONSCIOUSNESS [None]
  - TACHYCARDIA [None]
